FAERS Safety Report 19740171 (Version 2)
Quarter: 2021Q3

REPORT INFORMATION
  Report Type: Spontaneous
  Country: CZ (occurrence: SK)
  Receive Date: 20210824
  Receipt Date: 20210827
  Transmission Date: 20211014
  Serious: Yes (Other)
  Sender: FDA-Public Use
  Company Number: CZ-MYLANLABS-2021M1053816

PATIENT
  Age: 42 Year
  Sex: Female

DRUGS (3)
  1. GENTAMYCIN                         /00047101/ [Suspect]
     Active Substance: GENTAMICIN
     Indication: LEIOMYOMA
     Dosage: 240 MILLIGRAM, QD
  2. AMPICILLIN [Suspect]
     Active Substance: AMPICILLIN
     Indication: LEIOMYOMA
     Dosage: 4 GRAM, QD
  3. DEXAMETHASONE. [Suspect]
     Active Substance: DEXAMETHASONE
     Indication: PRODUCT USED FOR UNKNOWN INDICATION
     Dosage: UNK

REACTIONS (3)
  - Polyhydramnios [Unknown]
  - Liver disorder [Unknown]
  - Maternal exposure during pregnancy [Recovered/Resolved]
